FAERS Safety Report 7438601-9 (Version None)
Quarter: 2011Q2

REPORT INFORMATION
  Report Type: 
  Country: None (occurrence: None)
  Receive Date: 20110426
  Receipt Date: 20110425
  Transmission Date: 20111010
  Serious: Yes (Other)
  Sender: FDA-Public Use
  Company Number: US-PFIZER INC-2011089072

PATIENT
  Sex: Male
  Weight: 106.58 kg

DRUGS (10)
  1. CHANTIX [Suspect]
     Dosage: UNK
     Dates: start: 20110101, end: 20110101
  2. LISINOPRIL [Concomitant]
     Indication: HYPERTENSION
  3. PLAVIX [Concomitant]
     Indication: CORONARY ARTERY DISEASE
     Dosage: 30 MG, 2X/DAY
     Route: 048
  4. SOMA [Concomitant]
     Indication: BACK PAIN
     Dosage: 500 MG, 3X/DAY
     Route: 048
  5. OXYCONTIN [Concomitant]
     Indication: BACK PAIN
     Dosage: 20 MG, 3X/DAY
     Route: 048
  6. ACETYLSALICYLIC ACID [Concomitant]
     Indication: CORONARY ARTERY DISEASE
     Dosage: 325 MG, 1X/DAY
     Route: 048
  7. CHANTIX [Suspect]
     Indication: SMOKING CESSATION THERAPY
     Dosage: UNK
     Route: 048
     Dates: start: 20101101, end: 20100101
  8. ACETYLSALICYLIC ACID [Concomitant]
     Indication: HYPERTENSION
  9. LISINOPRIL [Concomitant]
     Indication: CORONARY ARTERY DISEASE
     Dosage: 5 MG, 2X/DAY
     Route: 048
  10. PLAVIX [Concomitant]
     Indication: HYPERTENSION

REACTIONS (3)
  - MENTAL STATUS CHANGES [None]
  - MENTAL DISORDER DUE TO A GENERAL MEDICAL CONDITION [None]
  - AGITATION [None]
